FAERS Safety Report 13903962 (Version 2)
Quarter: 2017Q3

REPORT INFORMATION
  Report Type: Spontaneous
  Country: JP (occurrence: JP)
  Receive Date: 20170824
  Receipt Date: 20170913
  Transmission Date: 20171127
  Serious: No
  Sender: FDA-Public Use
  Company Number: JP-TAKEDA-2017TJP017731

PATIENT
  Age: 6 Decade
  Sex: Female

DRUGS (1)
  1. TAKECAB TABLETS 20MG [Suspect]
     Active Substance: VONOPRAZAN FUMURATE
     Indication: HELICOBACTER INFECTION
     Dosage: 20 MG, BID
     Route: 048
     Dates: start: 2016, end: 2016

REACTIONS (1)
  - Colitis ischaemic [Recovered/Resolved]

NARRATIVE: CASE EVENT DATE: 2016
